FAERS Safety Report 4779858-2 (Version None)
Quarter: 2005Q3

REPORT INFORMATION
  Report Type: 
  Country: None (occurrence: None)
  Receive Date: 20050914
  Receipt Date: 20040903
  Transmission Date: 20060218
  Serious: Yes (Hospitalization)
  Sender: FDA-Public Use
  Company Number: 163-20785-04060657

PATIENT
  Age: 64 Year
  Sex: Male

DRUGS (17)
  1. THALOMID [Suspect]
     Indication: MULTIPLE MYELOMA
     Dosage: 100 MG, BID, ORAL
     Route: 048
     Dates: start: 20030829, end: 20040810
  2. BUMEX [Concomitant]
  3. SINGULAIR [Concomitant]
  4. FLECAINIDE ACETATE [Concomitant]
  5. MAVIK [Concomitant]
  6. NIACIN [Concomitant]
  7. FLOMAX [Concomitant]
  8. LANOXIN [Concomitant]
  9. ASPIRIN [Concomitant]
  10. IRON (IRON) [Concomitant]
  11. PROCRIT [Concomitant]
  12. ZOMETA [Concomitant]
  13. INSULIN [Concomitant]
  14. COUMADIN [Concomitant]
  15. B12 (CYANOCOBALAMIN) [Concomitant]
  16. CALCIUM (CALCIUM) [Concomitant]
  17. POTASSIUM (POTASSIUM) [Concomitant]

REACTIONS (6)
  - CARDIAC FAILURE CONGESTIVE [None]
  - DYSPNOEA [None]
  - EPISTAXIS [None]
  - HYPOAESTHESIA ORAL [None]
  - MALAISE [None]
  - OEDEMA PERIPHERAL [None]
